FAERS Safety Report 14124144 (Version 2)
Quarter: 2018Q1

REPORT INFORMATION
  Report Type: Spontaneous
  Country: GB (occurrence: GB)
  Receive Date: 20171025
  Receipt Date: 20180110
  Transmission Date: 20180508
  Serious: Yes (Hospitalization, Other)
  Sender: FDA-Public Use
  Company Number: GB-BAYER-2017-200260

PATIENT
  Age: 37 Year
  Sex: Female

DRUGS (4)
  1. MIRENA [Suspect]
     Active Substance: LEVONORGESTREL
     Indication: POLYCYSTIC OVARIES
  2. MIRENA [Suspect]
     Active Substance: LEVONORGESTREL
     Indication: POLYCYSTIC OVARIES
     Dates: start: 20161031
  3. MIRENA [Suspect]
     Active Substance: LEVONORGESTREL
     Indication: POLYCYSTIC OVARIES
  4. MIRENA [Suspect]
     Active Substance: LEVONORGESTREL
     Indication: POLYCYSTIC OVARIES
     Dosage: 20 MCG/24HR, CONT
     Route: 015
     Dates: start: 20161103

REACTIONS (27)
  - Off label use of device [None]
  - Heart rate irregular [Not Recovered/Not Resolved]
  - Premenstrual pain [Not Recovered/Not Resolved]
  - Back pain [Not Recovered/Not Resolved]
  - Agitation [Not Recovered/Not Resolved]
  - Sleep disorder [Not Recovered/Not Resolved]
  - Uterine infection [None]
  - Nervousness [Not Recovered/Not Resolved]
  - Blood pressure increased [Not Recovered/Not Resolved]
  - Feeling jittery [Not Recovered/Not Resolved]
  - Hyperhidrosis [Not Recovered/Not Resolved]
  - Headache [Not Recovered/Not Resolved]
  - Vitamin D deficiency [Not Recovered/Not Resolved]
  - Myocarditis [None]
  - Palpitations [Not Recovered/Not Resolved]
  - Emotional disorder [Not Recovered/Not Resolved]
  - Device use issue [None]
  - Dyspnoea [Not Recovered/Not Resolved]
  - Uterine pain [None]
  - Feeling cold [Not Recovered/Not Resolved]
  - Fatigue [Not Recovered/Not Resolved]
  - Stress [Not Recovered/Not Resolved]
  - Chest discomfort [Not Recovered/Not Resolved]
  - Anxiety [Not Recovered/Not Resolved]
  - Uterine pain [Not Recovered/Not Resolved]
  - Paraesthesia [Not Recovered/Not Resolved]
  - Depressed mood [Not Recovered/Not Resolved]

NARRATIVE: CASE EVENT DATE: 20161103
